FAERS Safety Report 8156875-6 (Version None)
Quarter: 2012Q1

REPORT INFORMATION
  Report Type: 
  Country: None (occurrence: None)
  Receive Date: 20120222
  Receipt Date: 20120217
  Transmission Date: 20120608
  Serious: Yes (Death)
  Sender: FDA-Public Use
  Company Number: DE-GLAXOSMITHKLINE-B0770305B

PATIENT
  Age: 51 Year
  Sex: Male
  Weight: 70 kg

DRUGS (2)
  1. LAPATINIB [Suspect]
     Indication: GASTROOESOPHAGEAL CANCER
     Dosage: 1250MG PER DAY
     Route: 048
     Dates: start: 20111205, end: 20120213
  2. CAPECITABINE [Suspect]
     Indication: GASTROOESOPHAGEAL CANCER
     Dosage: 1800MG PER DAY
     Route: 048
     Dates: start: 20111205, end: 20120213

REACTIONS (1)
  - DEATH [None]
